FAERS Safety Report 8857172 (Version 1)
Quarter: 2012Q4

REPORT INFORMATION
  Report Type: 
  Country: JP (occurrence: JP)
  Receive Date: 20121024
  Receipt Date: 20121024
  Transmission Date: 20130627
  Serious: Yes (Life-Threatening, Hospitalization, Other)
  Sender: FDA-Public Use
  Company Number: JP-AMGEN-JPNCT2012065389

PATIENT
  Age: 73 Year
  Sex: Female
  Weight: 58 kg

DRUGS (22)
  1. ETANERCEPT [Suspect]
     Indication: RHEUMATOID ARTHRITIS
     Dosage: 25 mg, bid
     Route: 058
     Dates: start: 20050603, end: 20050621
  2. ETANERCEPT [Suspect]
     Dosage: 25 mg, 2 times/wk
     Route: 058
     Dates: start: 20050708, end: 200602
  3. ONE-ALPHA [Concomitant]
     Dosage: 0.5 mug, qd
     Route: 048
  4. ASPARA K [Concomitant]
     Dosage: UNK
  5. BIOFERMIN                          /00275501/ [Concomitant]
     Dosage: UNK
     Route: 048
  6. CARDENALIN [Concomitant]
     Dosage: 4 mg, qd
  7. GASTROM [Concomitant]
     Dosage: UNK
     Route: 048
  8. FERROMIA /00023516/ [Concomitant]
     Dosage: UNK
     Route: 048
  9. LASIX                              /00032601/ [Concomitant]
     Dosage: UNK
     Route: 048
  10. ISCOTIN                            /00030201/ [Concomitant]
     Dosage: 300 mg, qd
     Route: 048
     Dates: start: 20050603, end: 20050624
  11. LORCAM [Concomitant]
     Dosage: 12 mg, qd
     Route: 048
  12. CALSLOT [Concomitant]
     Dosage: 20 mg, qd
     Route: 048
  13. CYTOTEC [Concomitant]
     Dosage: UNK
     Route: 048
  14. PREDNISOLONE [Concomitant]
     Dosage: 10 mg, qd
     Route: 048
  15. PREDNISOLONE [Concomitant]
     Dosage: UNK
     Route: 048
     Dates: start: 1997
  16. PREDNISOLONE [Concomitant]
     Dosage: UNK
     Dates: start: 1999
  17. PREDNISOLONE [Concomitant]
     Dosage: 10 mg, qd
     Route: 048
     Dates: start: 2004
  18. BUP-4 [Concomitant]
     Dosage: UNK
     Route: 048
  19. PARIET [Concomitant]
     Dosage: 20 mg, qd
     Route: 048
  20. BENETAZON [Concomitant]
     Dosage: UNK
     Route: 048
  21. BENET [Concomitant]
     Dosage: 25 mg, qd
  22. RIFAMPICIN [Concomitant]
     Dosage: 450 mg, qd
     Dates: start: 200507

REACTIONS (3)
  - Leukoencephalopathy [Recovering/Resolving]
  - Purpura [Recovered/Resolved]
  - Petechiae [Unknown]
